FAERS Safety Report 12184948 (Version 1)
Quarter: 2016Q1

REPORT INFORMATION
  Report Type: Spontaneous
  Country: None (occurrence: PL)
  Receive Date: 20160316
  Receipt Date: 20160316
  Transmission Date: 20160526
  Serious: Yes (Other)
  Sender: FDA-Public Use
  Company Number: PL-MEDAC PHARMA, INC.-1049194

PATIENT
  Sex: Female
  Weight: 70 kg

DRUGS (1)
  1. METEX [Suspect]
     Active Substance: METFORMIN HYDROCHLORIDE
     Route: 058
     Dates: start: 20141004, end: 20150216

REACTIONS (5)
  - Drug-induced liver injury [Recovering/Resolving]
  - Gamma-glutamyltransferase increased [Recovering/Resolving]
  - Blood alkaline phosphatase increased [Recovering/Resolving]
  - Alanine aminotransferase increased [Recovering/Resolving]
  - Aspartate aminotransferase increased [Recovering/Resolving]

NARRATIVE: CASE EVENT DATE: 2014
